FAERS Safety Report 6854306-7 (Version None)
Quarter: 2010Q3

REPORT INFORMATION
  Report Type: 
  Country: None (occurrence: None)
  Receive Date: 20100717
  Receipt Date: 20080102
  Transmission Date: 20110219
  Serious: No
  Sender: FDA-Public Use
  Company Number: US-PFIZER INC-2008001806

PATIENT
  Sex: Female

DRUGS (4)
  1. CHANTIX [Suspect]
     Indication: SMOKING CESSATION THERAPY
     Dates: start: 20071229
  2. UROCIT-K [Concomitant]
     Indication: NEPHROLITHIASIS
  3. HYDROCHLOROTHIAZIDE [Concomitant]
     Indication: NEPHROLITHIASIS
  4. VOLTAREN [Concomitant]
     Indication: ARTHRITIS

REACTIONS (3)
  - DYSGEUSIA [None]
  - INCORRECT DOSE ADMINISTERED [None]
  - TONGUE DISCOLOURATION [None]
